FAERS Safety Report 22227790 (Version 1)
Quarter: 2023Q2

REPORT INFORMATION
  Report Type: Report from Study
  Country: JP (occurrence: None)
  Receive Date: 20230419
  Receipt Date: 20230419
  Transmission Date: 20230721
  Serious: Yes (Hospitalization)
  Sender: FDA-Public Use
  Company Number: JP-ROCHE-3222108

PATIENT
  Age: 78 Year
  Sex: Female
  Weight: 59.5 kg

DRUGS (15)
  1. MOSUNETUZUMAB [Suspect]
     Active Substance: MOSUNETUZUMAB
     Indication: Non-Hodgkin^s lymphoma
     Dosage: ON 26/OCT/2022, SHE RECEIVED MOST RECENT DOSE 30 MG OF STUDY DRUG MOSUNETUZUMAB PRIOR TO SAE/AE.
     Route: 042
     Dates: start: 20220317
  2. LENALIDOMIDE [Suspect]
     Active Substance: LENALIDOMIDE
     Indication: Non-Hodgkin^s lymphoma
     Dosage: ON 15/NOV/2022, SHE RECEIVED MOST RECENT DOSE 5 MG OF STUDY DRUG LENALIDOMIDE PRIOR TO SAE/AE.
     Route: 048
     Dates: start: 20220407
  3. METHYLPREDNISOLONE SODIUM SUCCINATE [Concomitant]
     Active Substance: METHYLPREDNISOLONE SODIUM SUCCINATE
     Route: 042
     Dates: start: 20220317, end: 20230307
  4. ACETAMINOPHEN [Concomitant]
     Active Substance: ACETAMINOPHEN
     Route: 048
     Dates: start: 20220317, end: 20230307
  5. DIPHENHYDRAMINE HYDROCHLORIDE [Concomitant]
     Active Substance: DIPHENHYDRAMINE HYDROCHLORIDE
     Route: 048
     Dates: start: 20220317, end: 20230307
  6. ESOMEPRAZOLE MAGNESIUM [Concomitant]
     Active Substance: ESOMEPRAZOLE MAGNESIUM
     Route: 048
     Dates: start: 20220317
  7. ACYCLOVIR [Concomitant]
     Active Substance: ACYCLOVIR
     Route: 048
     Dates: start: 20220319
  8. MAGNESIUM OXIDE [Concomitant]
     Active Substance: MAGNESIUM OXIDE
     Route: 048
     Dates: start: 20220318
  9. ASPIRIN [Concomitant]
     Active Substance: ASPIRIN
     Route: 048
     Dates: start: 20220407, end: 20221213
  10. HEPARINOID [Concomitant]
     Dosage: 1 OTHER
     Route: 061
     Dates: start: 20220419
  11. LENOGRASTIM [Concomitant]
     Active Substance: LENOGRASTIM
     Route: 058
     Dates: start: 20221031, end: 20221031
  12. LENOGRASTIM [Concomitant]
     Active Substance: LENOGRASTIM
     Route: 058
     Dates: start: 20221101, end: 20221101
  13. LENOGRASTIM [Concomitant]
     Active Substance: LENOGRASTIM
     Route: 058
     Dates: start: 20221116, end: 20221116
  14. EVUSHELD [Concomitant]
     Active Substance: CILGAVIMAB\TIXAGEVIMAB
     Dosage: 1 OTHER
     Route: 030
     Dates: start: 20221219, end: 20221219
  15. LEVOFLOXACIN HEMIHYDRATE [Concomitant]
     Active Substance: LEVOFLOXACIN
     Route: 048
     Dates: start: 20221128, end: 20221204

REACTIONS (1)
  - COVID-19 pneumonia [Recovered/Resolved]

NARRATIVE: CASE EVENT DATE: 20221117
